FAERS Safety Report 12612272 (Version 5)
Quarter: 2017Q2

REPORT INFORMATION
  Report Type: Report from Study
  Country: JP (occurrence: JP)
  Receive Date: 20160801
  Receipt Date: 20170606
  Transmission Date: 20170830
  Serious: Yes (Hospitalization, Other)
  Sender: FDA-Public Use
  Company Number: JP-ELI_LILLY_AND_COMPANY-JP201605005346

PATIENT
  Age: 70 Year
  Sex: Male
  Weight: 70 kg

DRUGS (6)
  1. BAYASPIRIN [Concomitant]
     Active Substance: ASPIRIN
     Indication: DIABETES MELLITUS
  2. EQUA [Concomitant]
     Active Substance: VILDAGLIPTIN
     Indication: DIABETES MELLITUS
     Dosage: UNK
     Route: 048
     Dates: end: 20160425
  3. RAMUCIRUMAB [Suspect]
     Active Substance: RAMUCIRUMAB
     Indication: GASTRIC CANCER STAGE IV
     Dosage: 560 MG, OTHER
     Route: 042
     Dates: start: 20160413, end: 20160413
  4. PACLITAXEL. [Suspect]
     Active Substance: PACLITAXEL
     Indication: GASTRIC CANCER STAGE IV
     Dosage: 130 MG, OTHER
     Route: 042
     Dates: start: 20160413, end: 20160420
  5. BAYASPIRIN [Concomitant]
     Active Substance: ASPIRIN
     Indication: HYPERTENSION
     Dosage: UNK
     Route: 048
     Dates: end: 20160425
  6. IRTRA [Concomitant]
     Active Substance: IRBESARTAN\TRICHLORMETHIAZIDE
     Indication: HYPERTENSION
     Dosage: UNK
     Route: 048
     Dates: end: 20160425

REACTIONS (4)
  - Febrile neutropenia [Recovering/Resolving]
  - Hypoalbuminaemia [Recovering/Resolving]
  - Oral candidiasis [Recovering/Resolving]
  - Interstitial lung disease [Recovered/Resolved with Sequelae]

NARRATIVE: CASE EVENT DATE: 20160425
